FAERS Safety Report 5302528-9 (Version None)
Quarter: 2007Q2

REPORT INFORMATION
  Report Type: 
  Country: None (occurrence: None)
  Receive Date: 20070413
  Receipt Date: 20070405
  Transmission Date: 20071010
  Serious: Yes (Congenital Anomaly)
  Sender: FDA-Public Use
  Company Number: S07-USA-01504-02

PATIENT
  Sex: Female
  Weight: 3.3748 kg

DRUGS (4)
  1. LEXAPRO [Suspect]
     Dosage: 20 MG QD TRANSPLACENTAL
     Route: 064
     Dates: start: 20050301, end: 20050101
  2. TYLENOL [Concomitant]
  3. ALKA-SELTZER COLD PLUS (ACETAMINOPHEN/CHLORPHENIRAMINE/PHENYLEPHRINE) [Concomitant]
  4. PRENATAL VITAMIN (NOS) [Concomitant]

REACTIONS (4)
  - DRUG EXPOSURE BEFORE PREGNANCY [None]
  - DRUG EXPOSURE DURING PREGNANCY [None]
  - HEART DISEASE CONGENITAL [None]
  - TRANSPOSITION OF THE GREAT VESSELS [None]
